FAERS Safety Report 22025756 (Version 1)
Quarter: 2023Q1

REPORT INFORMATION
  Report Type: Spontaneous
  Country: US (occurrence: None)
  Receive Date: 20230223
  Receipt Date: 20230223
  Transmission Date: 20230418
  Serious: No
  Sender: FDA-Public Use
  Company Number: US-ROCHE-3133575

PATIENT
  Sex: Female

DRUGS (24)
  1. XOLAIR [Suspect]
     Active Substance: OMALIZUMAB
     Indication: Asthma
     Dosage: XOLAIR 150 ML VIAL
     Route: 058
  2. FERROUS SULFATE [Concomitant]
     Active Substance: FERROUS SULFATE
  3. SIMVASTATIN [Concomitant]
     Active Substance: SIMVASTATIN
  4. URSODIOL [Concomitant]
     Active Substance: URSODIOL
  5. BUSPIRONE HYDROCHLORIDE [Concomitant]
     Active Substance: BUSPIRONE HYDROCHLORIDE
  6. ESCITALOPRAM OXALATE [Concomitant]
     Active Substance: ESCITALOPRAM OXALATE
  7. ALENDRONATE SODIUM [Concomitant]
     Active Substance: ALENDRONATE SODIUM
  8. CICLOPIROX [Concomitant]
     Active Substance: CICLOPIROX
  9. HYDROCORTISONE [Concomitant]
     Active Substance: HYDROCORTISONE
  10. KETOCONAZOLE [Concomitant]
     Active Substance: KETOCONAZOLE
  11. METRONIDAZOLE [Concomitant]
     Active Substance: METRONIDAZOLE
  12. MONTELUKAST SODIUM [Concomitant]
     Active Substance: MONTELUKAST SODIUM
  13. OMEPRAZOLE [Concomitant]
     Active Substance: OMEPRAZOLE
  14. PIOGLITAZONE [Concomitant]
     Active Substance: PIOGLITAZONE
  15. SPIRIVA [Concomitant]
     Active Substance: TIOTROPIUM BROMIDE MONOHYDRATE
  16. SYMBICORT [Concomitant]
     Active Substance: BUDESONIDE\FORMOTEROL FUMARATE DIHYDRATE
  17. TRAZODONE HCL [Concomitant]
     Active Substance: TRAZODONE HYDROCHLORIDE
  18. VALSARTAN [Concomitant]
     Active Substance: VALSARTAN
  19. HYDROCHLOROTHIAZIDE\VALSARTAN [Concomitant]
     Active Substance: HYDROCHLOROTHIAZIDE\VALSARTAN
  20. FLUTICASONE PROPIONATE [Concomitant]
     Active Substance: FLUTICASONE PROPIONATE
  21. IBUPROFEN [Concomitant]
     Active Substance: IBUPROFEN
  22. TRAMADOL HCL [Concomitant]
     Active Substance: TRAMADOL HYDROCHLORIDE
  23. DIOVAN HCT [Concomitant]
     Active Substance: HYDROCHLOROTHIAZIDE\VALSARTAN
  24. CLONAZEPAM [Concomitant]
     Active Substance: CLONAZEPAM

REACTIONS (1)
  - Drug ineffective [Unknown]
